FAERS Safety Report 5468900-1 (Version None)
Quarter: 2007Q3

REPORT INFORMATION
  Report Type: 
  Country: None (occurrence: None)
  Receive Date: 20070926
  Receipt Date: 20070914
  Transmission Date: 20080115
  Serious: Yes (Other)
  Sender: FDA-Public Use
  Company Number: SE-SHR-SE-2007-017918

PATIENT
  Age: 75 Year
  Sex: Male

DRUGS (2)
  1. FLUDARABINE PHOSPHATE [Suspect]
     Route: 042
     Dates: start: 20051121, end: 20060217
  2. IMMUNOGLOBULINS [Concomitant]
     Indication: PROPHYLAXIS
     Route: 042
     Dates: start: 20070117

REACTIONS (1)
  - MALIGNANT MELANOMA [None]
